FAERS Safety Report 4958675-4 (Version None)
Quarter: 2006Q1

REPORT INFORMATION
  Report Type: 
  Country: None (occurrence: None)
  Receive Date: 20060330
  Receipt Date: 20060202
  Transmission Date: 20060701
  Serious: Yes (Hospitalization)
  Sender: FDA-Public Use
  Company Number: US-MERCK-0602USA01671

PATIENT
  Age: 52 Year
  Sex: Female
  Weight: 68 kg

DRUGS (3)
  1. VIOXX [Suspect]
     Indication: ARTHRITIS
     Route: 048
     Dates: start: 19991101, end: 20040501
  2. ANACIN [Concomitant]
     Route: 065
  3. [THERAPY UNSPECIFIED] [Concomitant]
     Route: 065

REACTIONS (7)
  - ANEURYSM [None]
  - ANXIETY [None]
  - CARDIAC DISORDER [None]
  - DEPRESSION [None]
  - DIABETES MELLITUS [None]
  - LOSS OF CONSCIOUSNESS [None]
  - SUBARACHNOID HAEMORRHAGE [None]
